FAERS Safety Report 9274894 (Version 4)
Quarter: 2013Q4

REPORT INFORMATION
  Report Type: Spontaneous
  Country: US (occurrence: US)
  Receive Date: 20130507
  Receipt Date: 20131114
  Transmission Date: 20140711
  Serious: Yes (Hospitalization, Other)
  Sender: FDA-Public Use
  Company Number: US-B.I. PHARMACEUTICALS,INC./RIDGEFIELD-2013-BI-12345BP

PATIENT
  Age: 81 Year
  Sex: Female
  Weight: 58.97 kg

DRUGS (18)
  1. PRADAXA [Suspect]
     Indication: ATRIAL FIBRILLATION
     Dosage: 150 MG
     Route: 048
     Dates: start: 201105, end: 20120121
  2. LISINOPRIL [Concomitant]
     Indication: CARDIAC FAILURE CONGESTIVE
     Dosage: 20 MG
     Route: 048
  3. LISINOPRIL [Concomitant]
     Indication: ATRIAL FIBRILLATION
  4. LISINOPRIL [Concomitant]
     Indication: HYPERTENSION
  5. ATENOLOL [Concomitant]
     Indication: CARDIAC FAILURE CONGESTIVE
     Route: 048
  6. ATENOLOL [Concomitant]
     Indication: ATRIAL FIBRILLATION
  7. ATENOLOL [Concomitant]
     Indication: ESSENTIAL HYPERTENSION
  8. DIGOXIN [Concomitant]
     Dosage: 0.125 MG
     Route: 048
  9. VITAMIN B12 [Concomitant]
     Dosage: 1000 MCG
     Route: 048
  10. FERROUS SULFATE [Concomitant]
     Indication: ANAEMIA
     Dosage: 325 MG
  11. CALCIUM WITH VITAMIN D3 [Concomitant]
  12. MAGNESIUM [Concomitant]
     Dosage: 400 MG
  13. POTASSIUM [Concomitant]
     Dosage: 20 MEQ
  14. NITROGLYCERIN [Concomitant]
  15. FISH OIL [Concomitant]
     Indication: HYPERLIPIDAEMIA
     Route: 048
  16. ATIVAN [Concomitant]
     Indication: ANXIETY DISORDER
  17. HYDROCORTISONE [Concomitant]
     Route: 061
  18. VITAMIN CO-Q10 [Concomitant]
     Dosage: 200 MG
     Route: 048

REACTIONS (3)
  - Haemoglobin decreased [Unknown]
  - Gastrointestinal haemorrhage [Unknown]
  - Renal failure acute [Unknown]
